FAERS Safety Report 23591328 (Version 2)
Quarter: 2024Q1

REPORT INFORMATION
  Report Type: Spontaneous
  Country: NZ (occurrence: NZ)
  Receive Date: 20240304
  Receipt Date: 20240328
  Transmission Date: 20240409
  Serious: Yes (Other)
  Sender: FDA-Public Use
  Company Number: NZ-002147023-NVSC2024NZ044056

PATIENT
  Age: 66 Year
  Sex: Male
  Weight: 105 kg

DRUGS (25)
  1. ENTRESTO [Suspect]
     Active Substance: SACUBITRIL\VALSARTAN
     Indication: Cardiac failure
     Dosage: UNK UNK, BID (49/51 BD)
     Route: 065
  2. ENTRESTO [Suspect]
     Active Substance: SACUBITRIL\VALSARTAN
     Dosage: UNK (97/103, BD)
     Route: 065
  3. ENTRESTO [Suspect]
     Active Substance: SACUBITRIL\VALSARTAN
     Dosage: UNK, BID (49/51 BD)
     Route: 048
     Dates: start: 20230922
  4. METOPROLOL [Suspect]
     Active Substance: METOPROLOL
     Indication: Cardiac failure
     Dosage: 95 MG, QD
     Route: 065
  5. METOPROLOL [Suspect]
     Active Substance: METOPROLOL
     Dosage: 190 MG, QD
     Route: 048
  6. RIVAROXABAN [Suspect]
     Active Substance: RIVAROXABAN
     Indication: Atrial fibrillation
     Dosage: 20 MG, QD
     Route: 065
  7. OMEPRAZOLE [Suspect]
     Active Substance: OMEPRAZOLE
     Indication: Gastrooesophageal reflux disease
     Dosage: 20 MG, QD
     Route: 065
  8. METFORMIN HYDROCHLORIDE\VILDAGLIPTIN [Suspect]
     Active Substance: METFORMIN HYDROCHLORIDE\VILDAGLIPTIN
     Indication: Diabetes mellitus
     Dosage: UNK (50MG/1000MG, BD)
     Route: 065
  9. FUROSEMIDE [Suspect]
     Active Substance: FUROSEMIDE
     Indication: Product used for unknown indication
     Dosage: 40 MG, QD
     Route: 065
  10. FUROSEMIDE [Suspect]
     Active Substance: FUROSEMIDE
     Dosage: 20 MG, QD
     Route: 065
  11. FUROSEMIDE [Suspect]
     Active Substance: FUROSEMIDE
     Dosage: 40 MG, PRN
     Route: 065
  12. GLICLAZIDE [Suspect]
     Active Substance: GLICLAZIDE
     Indication: Product used for unknown indication
     Dosage: 80 MG, QD
     Route: 065
  13. LANTUS [Suspect]
     Active Substance: INSULIN GLARGINE
     Indication: Product used for unknown indication
     Dosage: 42 U, QD
     Route: 065
  14. LANTUS [Suspect]
     Active Substance: INSULIN GLARGINE
     Dosage: 38 U
     Route: 065
  15. LANTUS [Suspect]
     Active Substance: INSULIN GLARGINE
     Dosage: UNK (INCREASED BSL GREATER THAN 10 ON AVERAGE)
     Route: 065
  16. QUINAPRIL [Suspect]
     Active Substance: QUINAPRIL
     Indication: Product used for unknown indication
     Dosage: 20 MG, QD
     Route: 065
  17. DIGOXIN [Suspect]
     Active Substance: DIGOXIN
     Indication: Product used for unknown indication
     Dosage: 125 UG, QD
     Route: 065
  18. FELODIPINE [Suspect]
     Active Substance: FELODIPINE
     Indication: Product used for unknown indication
     Dosage: UNK
     Route: 065
  19. EMPAGLIFLOZIN [Suspect]
     Active Substance: EMPAGLIFLOZIN
     Indication: Product used for unknown indication
     Dosage: 10 MG, QD
     Route: 065
  20. EMPAGLIFLOZIN [Suspect]
     Active Substance: EMPAGLIFLOZIN
     Dosage: 25 MG, QD
     Route: 065
  21. SPIRONOLACTONE [Suspect]
     Active Substance: SPIRONOLACTONE
     Indication: Product used for unknown indication
     Dosage: 12.5 MG, QD
     Route: 065
  22. SPIRONOLACTONE [Suspect]
     Active Substance: SPIRONOLACTONE
     Dosage: 25 MG, QD
     Route: 065
  23. SPIRONOLACTONE [Suspect]
     Active Substance: SPIRONOLACTONE
     Dosage: 50 MG, QD
     Route: 065
  24. ATORVASTATIN [Suspect]
     Active Substance: ATORVASTATIN
     Indication: Hyperlipidaemia
     Dosage: 40 MG, QD
     Route: 065
  25. ATORVASTATIN [Suspect]
     Active Substance: ATORVASTATIN
     Dosage: 80 MG, QD
     Route: 065

REACTIONS (12)
  - Atrial fibrillation [Unknown]
  - Ischaemic cardiomyopathy [Unknown]
  - Hyperkalaemia [Recovered/Resolved]
  - Joint swelling [Recovering/Resolving]
  - Blood pressure increased [Recovered/Resolved]
  - Exercise tolerance decreased [Recovering/Resolving]
  - Hyponatraemia [Unknown]
  - Dehydration [Unknown]
  - Hyperlipidaemia [Unknown]
  - Iron deficiency [Unknown]
  - Dyspnoea [Recovering/Resolving]
  - Oedema peripheral [Unknown]

NARRATIVE: CASE EVENT DATE: 20231002
